FAERS Safety Report 18792407 (Version 1)
Quarter: 2021Q1

REPORT INFORMATION
  Report Type: Other
  Country: CA (occurrence: CA)
  Receive Date: 20210127
  Receipt Date: 20210127
  Transmission Date: 20210419
  Serious: Yes (Other)
  Sender: FDA-Public Use
  Company Number: CA-CELLTRION INC.-2021CA000720

PATIENT

DRUGS (11)
  1. PANTOPRAZOLE [Concomitant]
     Active Substance: PANTOPRAZOLE
  2. BENADRYL [Concomitant]
     Active Substance: DIPHENHYDRAMINE HYDROCHLORIDE
  3. GLUCOSAMINE [Concomitant]
     Active Substance: GLUCOSAMINE
  4. RITUXIMAB (UNKNOWN) [Suspect]
     Active Substance: RITUXIMAB
     Indication: PEMPHIGUS
     Dosage: UNK
     Route: 042
  5. ATORVASTATIN [Concomitant]
     Active Substance: ATORVASTATIN
  6. METHYLPREDNISOLONE. [Concomitant]
     Active Substance: METHYLPREDNISOLONE
  7. BISOPROLOL [Concomitant]
     Active Substance: BISOPROLOL
  8. TYLENOL [Concomitant]
     Active Substance: ACETAMINOPHEN
  9. RITUXIMAB (UNKNOWN) [Suspect]
     Active Substance: RITUXIMAB
     Dosage: 1000.0 MG, 1 EVERY 15 DAYS
     Route: 042
  10. RIVAROXABAN [Concomitant]
     Active Substance: RIVAROXABAN
  11. WARFARIN [Concomitant]
     Active Substance: WARFARIN

REACTIONS (3)
  - Atrial fibrillation [Unknown]
  - Product use in unapproved indication [Unknown]
  - Off label use [Unknown]
